FAERS Safety Report 7139458-6 (Version None)
Quarter: 2010Q4

REPORT INFORMATION
  Report Type: 
  Country: None (occurrence: None)
  Receive Date: 20101206
  Receipt Date: 20101202
  Transmission Date: 20110411
  Serious: Yes (Other)
  Sender: FDA-Public Use
  Company Number: US-PFIZER INC-2010140929

PATIENT
  Sex: Female
  Weight: 90.7 kg

DRUGS (5)
  1. CHANTIX [Suspect]
     Indication: SMOKING CESSATION THERAPY
     Dosage: 0.5 MG, 1X/DAY
     Route: 048
     Dates: start: 20101026
  2. CHANTIX [Suspect]
     Dosage: 1 MG, 2X/DAY
     Route: 048
     Dates: start: 20101026, end: 20101116
  3. VALIUM [Concomitant]
     Indication: MUSCLE SPASMS
     Dosage: UNK
     Dates: start: 20101025
  4. VALIUM [Concomitant]
     Indication: INTERVERTEBRAL DISC DEGENERATION
  5. OXYCONTIN [Concomitant]
     Dosage: UNK

REACTIONS (2)
  - OROPHARYNGEAL BLISTERING [None]
  - URINARY TRACT INFECTION [None]
